FAERS Safety Report 20999958 (Version 1)
Quarter: 2022Q2

REPORT INFORMATION
  Report Type: Spontaneous
  Country: CA (occurrence: None)
  Receive Date: 20220623
  Receipt Date: 20220623
  Transmission Date: 20220720
  Serious: No
  Sender: FDA-Public Use
  Company Number: None

PATIENT
  Age: 31 Year
  Sex: Female
  Weight: 72 kg

DRUGS (4)
  1. CIPROFLOXACIN [Suspect]
     Active Substance: CIPROFLOXACIN
     Indication: Urinary tract infection
     Dosage: OTHER QUANTITY : 30 TABLET(S);?FREQUENCY : TWICE A DAY;?
     Route: 048
  2. PROZAC [Concomitant]
     Active Substance: FLUOXETINE HYDROCHLORIDE
  3. BUSPAR [Concomitant]
     Active Substance: BUSPIRONE HYDROCHLORIDE
  4. NEURONTIN [Concomitant]

REACTIONS (16)
  - Palpitations [None]
  - Chest pain [None]
  - Dizziness [None]
  - Headache [None]
  - Nausea [None]
  - Myalgia [None]
  - Fatigue [None]
  - Emotional disorder [None]
  - Menstruation irregular [None]
  - Anorgasmia [None]
  - Feeling of body temperature change [None]
  - Tendon pain [None]
  - Tendon pain [None]
  - Feeling abnormal [None]
  - Crying [None]
  - Agitation [None]

NARRATIVE: CASE EVENT DATE: 20220621
